FAERS Safety Report 17977331 (Version 2)
Quarter: 2020Q3

REPORT INFORMATION
  Report Type: Spontaneous
  Country: JP (occurrence: JP)
  Receive Date: 20200702
  Receipt Date: 20200707
  Transmission Date: 20201103
  Serious: Yes (Other)
  Sender: FDA-Public Use
  Company Number: JP-BAXTER-2020BAX013531

PATIENT
  Age: 44 Year
  Sex: Male

DRUGS (5)
  1. ENDOXAN 1G [Suspect]
     Active Substance: CYCLOPHOSPHAMIDE
     Indication: DERMATOMYOSITIS
     Dosage: 22 TIMES OF ONCE EVERY 2 WEEKS
     Route: 065
  2. HUMAN NORMAL IMMUNOGLOBULIN [Concomitant]
     Active Substance: HUMAN IMMUNOGLOBULIN G
     Indication: DERMATOMYOSITIS
     Route: 042
  3. TACROLIMUS HYDRATE [Concomitant]
     Active Substance: TACROLIMUS
     Indication: DERMATOMYOSITIS
     Route: 065
  4. PREDONINE [Concomitant]
     Active Substance: PREDNISOLONE
     Indication: DERMATOMYOSITIS
     Route: 065
  5. METHYLPREDNISOLONE ACETATE. [Concomitant]
     Active Substance: METHYLPREDNISOLONE ACETATE
     Indication: DERMATOMYOSITIS
     Route: 065

REACTIONS (5)
  - Thrombocytopenia [Unknown]
  - Depersonalisation/derealisation disorder [Unknown]
  - Atrial fibrillation [Unknown]
  - Hepatic failure [Unknown]
  - Cytomegalovirus infection reactivation [Unknown]
